FAERS Safety Report 6211639-5 (Version None)
Quarter: 2009Q2

REPORT INFORMATION
  Report Type: 
  Country: None (occurrence: None)
  Receive Date: 20090602
  Receipt Date: 20090525
  Transmission Date: 20091009
  Serious: Yes (Other)
  Sender: FDA-Public Use
  Company Number: A0766914A

PATIENT
  Sex: Male

DRUGS (5)
  1. KIVEXA [Suspect]
     Indication: HIV INFECTION
     Route: 048
     Dates: start: 20050525, end: 20080303
  2. NORVIR [Suspect]
     Indication: HIV INFECTION
     Route: 048
     Dates: start: 20050121, end: 20080303
  3. COMBIVIR [Suspect]
     Indication: HIV INFECTION
     Route: 048
     Dates: start: 20050121, end: 20050520
  4. REYATAZ [Suspect]
     Indication: HIV INFECTION
     Route: 048
     Dates: start: 20050525, end: 20080303
  5. TELZIR [Suspect]
     Indication: HIV INFECTION
     Route: 048
     Dates: start: 20050121, end: 20050520

REACTIONS (3)
  - DRUG INTOLERANCE [None]
  - HAEMATOTOXICITY [None]
  - MYOCARDIAL INFARCTION [None]
